FAERS Safety Report 6966194-9 (Version None)
Quarter: 2010Q3

REPORT INFORMATION
  Report Type: 
  Country: None (occurrence: None)
  Receive Date: 20100903
  Receipt Date: 20100830
  Transmission Date: 20110219
  Serious: Yes (Life-Threatening, Hospitalization)
  Sender: FDA-Public Use
  Company Number: PHHY2010DE47086

PATIENT
  Sex: Male
  Weight: 82 kg

DRUGS (1)
  1. GLEEVEC [Suspect]
     Indication: GASTROINTESTINAL STROMAL TUMOUR
     Dosage: 400 MG/DAY
     Route: 048
     Dates: start: 20081024, end: 20090103

REACTIONS (3)
  - CONFUSIONAL STATE [None]
  - PLEURAL EFFUSION [None]
  - RESPIRATORY ARREST [None]
